FAERS Safety Report 9290456 (Version 1)
Quarter: 2012Q4

REPORT INFORMATION
  Report Type: Spontaneous
  Country: FR (occurrence: None)
  Receive Date: 20121004
  Receipt Date: 20121004
  Transmission Date: 20130627
  Serious: Yes (Hospitalization)
  Sender: FDA-Public Use
  Company Number: 218908

PATIENT
  Age: 64 Year
  Sex: Male

DRUGS (1)
  1. INNOHEP (TINZAPARIN SODIUM) [Suspect]
     Indication: DEEP VEIN THROMBOSIS LEG
     Route: 058
     Dates: start: 20120830, end: 20120902

REACTIONS (2)
  - Urticaria [None]
  - Oedema peripheral [None]
